FAERS Safety Report 23533167 (Version 1)
Quarter: 2024Q1

REPORT INFORMATION
  Report Type: Report from Study
  Country: US (occurrence: US)
  Receive Date: 20240216
  Receipt Date: 20240216
  Transmission Date: 20240409
  Serious: Yes (Hospitalization, Other)
  Sender: FDA-Public Use
  Company Number: US-TAIHOP-2023-003721

PATIENT
  Age: 54 Year
  Sex: Male
  Weight: 76.1 kg

DRUGS (2)
  1. LONSURF [Suspect]
     Active Substance: TIPIRACIL HYDROCHLORIDE\TRIFLURIDINE
     Indication: Hepatic cancer
     Dosage: FORM STRENGTH 15 MG AND 20 MG, CYCLE 1
     Route: 048
     Dates: start: 20230413
  2. LONSURF [Suspect]
     Active Substance: TIPIRACIL HYDROCHLORIDE\TRIFLURIDINE
     Dosage: CURRENT CYCLE UNKNOWN
     Route: 048

REACTIONS (7)
  - Hepatic haemorrhage [Unknown]
  - Drug hypersensitivity [Unknown]
  - Red blood cell count abnormal [Unknown]
  - White blood cell count abnormal [Unknown]
  - Tumour marker increased [Recovering/Resolving]
  - Fatigue [Unknown]
  - Off label use [Unknown]
